FAERS Safety Report 6701564-5 (Version None)
Quarter: 2010Q2

REPORT INFORMATION
  Report Type: 
  Country: None (occurrence: None)
  Receive Date: 20100427
  Receipt Date: 20100413
  Transmission Date: 20101027
  Serious: Yes (Hospitalization, Other)
  Sender: FDA-Public Use
  Company Number: 002246

PATIENT
  Sex: Male
  Weight: 75.7507 kg

DRUGS (14)
  1. ROTIGOTINE [Suspect]
     Indication: PARKINSON'S DISEASE
     Dosage: 6 MG QD TRANSDERMAL
     Route: 062
     Dates: start: 20090606
  2. ACCUPRIL [Concomitant]
  3. ALLERGY MEDICATION [Concomitant]
  4. SINEMET [Concomitant]
  5. ASPIRIN [Concomitant]
  6. AVODART [Concomitant]
  7. LIPITOR [Concomitant]
  8. VITAMIN B COMPLEX TAB [Concomitant]
  9. VITAMIN D [Concomitant]
  10. VITAMIN E [Concomitant]
  11. BENEFIBER [Concomitant]
  12. CALCIUM [Concomitant]
  13. DEXAMETHASONE W/TOBRAMYCIN [Concomitant]
  14. VICODIN [Concomitant]

REACTIONS (6)
  - BLOOD GLUCOSE INCREASED [None]
  - BRADYCARDIA [None]
  - HAEMATOCRIT DECREASED [None]
  - HAEMOGLOBIN DECREASED [None]
  - MYOGLOBIN BLOOD DECREASED [None]
  - SYNCOPE [None]
